FAERS Safety Report 11037863 (Version 3)
Quarter: 2016Q2

REPORT INFORMATION
  Report Type: Spontaneous
  Country: GB (occurrence: GB)
  Receive Date: 20150416
  Receipt Date: 20160401
  Transmission Date: 20160815
  Serious: Yes (Congenital Anomaly)
  Sender: FDA-Public Use
  Company Number: GB-TEVA-554716ACC

PATIENT
  Age: 3 Month
  Sex: Male
  Weight: 3 kg

DRUGS (3)
  1. MMR VACCINE [Suspect]
     Active Substance: MEASLES-MUMPS-RUBELLA VIRUS VACCINE, LIVE
     Indication: IMMUNISATION
  2. MMR VACCINE [Suspect]
     Active Substance: MEASLES-MUMPS-RUBELLA VIRUS VACCINE, LIVE
     Indication: IMMUNISATION
     Route: 064
     Dates: start: 20140305, end: 20140305
  3. FOLIC ACID. [Suspect]
     Active Substance: FOLIC ACID
     Indication: PREGNANCY
     Route: 064
     Dates: start: 20140417, end: 20140731

REACTIONS (2)
  - Foetal exposure during pregnancy [Unknown]
  - Haemoglobin S [Unknown]
